FAERS Safety Report 10620875 (Version 1)
Quarter: 2014Q4

REPORT INFORMATION
  Report Type: Spontaneous
  Country: US (occurrence: US)
  Receive Date: 20141202
  Receipt Date: 20141202
  Transmission Date: 20150529
  Serious: No
  Sender: FDA-Public Use
  Company Number: US-SA-2014SA137474

PATIENT

DRUGS (1)
  1. RENVELA [Suspect]
     Active Substance: SEVELAMER CARBONATE
     Dosage: RENVELA 800MG/4 TABLETS WITH MEALS AND 3 TABLETS WITH SNACKS
     Route: 048

REACTIONS (1)
  - Diarrhoea [Not Recovered/Not Resolved]
